FAERS Safety Report 15730381 (Version 2)
Quarter: 2019Q1

REPORT INFORMATION
  Report Type: Spontaneous
  Country: US (occurrence: US)
  Receive Date: 20181217
  Receipt Date: 20190301
  Transmission Date: 20190417
  Serious: Yes (Other)
  Sender: FDA-Public Use
  Company Number: US-SA-2018SA337584

PATIENT
  Age: 45 Year
  Sex: Female
  Weight: 89 kg

DRUGS (8)
  1. TAXOTERE [Suspect]
     Active Substance: DOCETAXEL
     Dosage: UNK UNK, Q3W
     Route: 042
     Dates: start: 20120926, end: 20120926
  2. 5-FLUOROURACIL [FLUOROURACIL] [Concomitant]
     Active Substance: FLUOROURACIL
  3. ELLENCE [Concomitant]
     Active Substance: EPIRUBICIN HYDROCHLORIDE
  4. TAXOTERE [Suspect]
     Active Substance: DOCETAXEL
     Indication: BREAST CANCER FEMALE
     Dosage: UNK UNK, Q3W
     Route: 042
     Dates: start: 20120625, end: 20120625
  5. PARAPLATIN [Concomitant]
     Active Substance: CARBOPLATIN
  6. CYTOXAN [Concomitant]
     Active Substance: CYCLOPHOSPHAMIDE
  7. NEOSAR [Concomitant]
     Active Substance: CYCLOPHOSPHAMIDE
  8. TAXOL [Concomitant]
     Active Substance: PACLITAXEL

REACTIONS (2)
  - Alopecia [Recovering/Resolving]
  - Psychological trauma [Unknown]

NARRATIVE: CASE EVENT DATE: 20130326
